FAERS Safety Report 10270648 (Version 1)
Quarter: 2014Q3

REPORT INFORMATION
  Report Type: Spontaneous
  Country: FR (occurrence: FR)
  Receive Date: 20140701
  Receipt Date: 20140701
  Transmission Date: 20150326
  Serious: Yes (Hospitalization)
  Sender: FDA-Public Use
  Company Number: FR-BAYER-2014-094601

PATIENT
  Age: 42 Year
  Sex: Female

DRUGS (2)
  1. CONTRAMAL [Concomitant]
     Active Substance: TRAMADOL HYDROCHLORIDE
  2. IZILOX [Suspect]
     Active Substance: MOXIFLOXACIN HYDROCHLORIDE

REACTIONS (10)
  - Diarrhoea [None]
  - Migraine [None]
  - Headache [None]
  - Visual impairment [None]
  - Depression [None]
  - Sleep disorder [None]
  - Fatigue [None]
  - Autonomic nervous system imbalance [None]
  - Vertigo [None]
  - Migraine with aura [None]
